FAERS Safety Report 10415048 (Version 1)
Quarter: 2014Q3

REPORT INFORMATION
  Report Type: Spontaneous
  Country: US (occurrence: None)
  Receive Date: 20140827
  Receipt Date: 20140827
  Transmission Date: 20150326
  Serious: No
  Sender: FDA-Public Use
  Company Number: None

PATIENT
  Age: 54 Year
  Sex: Female

DRUGS (1)
  1. TECFIDERA [Suspect]
     Active Substance: DIMETHYL FUMARATE
     Indication: MULTIPLE SCLEROSIS
     Route: 048
     Dates: start: 20130913, end: 20140809

REACTIONS (6)
  - Dizziness [None]
  - Peripheral swelling [None]
  - Arthralgia [None]
  - Pollakiuria [None]
  - Pain in extremity [None]
  - Tremor [None]

NARRATIVE: CASE EVENT DATE: 20140809
